FAERS Safety Report 12248390 (Version 1)
Quarter: 2016Q2

REPORT INFORMATION
  Report Type: Spontaneous
  Country: US (occurrence: None)
  Receive Date: 20160407
  Receipt Date: 20160407
  Transmission Date: 20160815
  Serious: No
  Sender: FDA-Public Use
  Company Number: None

PATIENT
  Age: 62 Year
  Sex: Female

DRUGS (7)
  1. LEVEMIR [Concomitant]
     Active Substance: INSULIN DETEMIR
  2. IBUPROFEN. [Concomitant]
     Active Substance: IBUPROFEN
  3. LORAZEPAM. [Concomitant]
     Active Substance: LORAZEPAM
  4. HARVONI [Suspect]
     Active Substance: LEDIPASVIR\SOFOSBUVIR
     Indication: CHRONIC HEPATITIS C
     Dosage: 90-400MG QD PO
     Route: 048
     Dates: start: 20160219
  5. HUMALOG [Concomitant]
     Active Substance: INSULIN LISPRO
  6. NOVOLOG [Concomitant]
     Active Substance: INSULIN ASPART
  7. ESCITALOPRAM [Concomitant]
     Active Substance: ESCITALOPRAM OXALATE

REACTIONS (2)
  - Myalgia [None]
  - Fatigue [None]

NARRATIVE: CASE EVENT DATE: 20160219
